FAERS Safety Report 7996110-2 (Version None)
Quarter: 2011Q4

REPORT INFORMATION
  Report Type: 
  Country: None (occurrence: None)
  Receive Date: 20111216
  Receipt Date: 20111201
  Transmission Date: 20120403
  Serious: Yes (Other)
  Sender: FDA-Public Use
  Company Number: 2011P1013641

PATIENT
  Age: 56 Year
  Sex: Female
  Weight: 64.4108 kg

DRUGS (8)
  1. GABAPENTIN [Concomitant]
  2. FENTANYL [Suspect]
     Indication: PAIN
     Dosage: 1 PATCH;Q3D;TDER
     Route: 062
     Dates: start: 20010101
  3. LEVETIRACETAM ER [Concomitant]
  4. FENTANYL CITRATE [Suspect]
     Indication: PAIN
     Dosage: 1 PATCH;Q3D;TDER
     Route: 062
     Dates: start: 20010101
  5. ORPHENADRINE CITRATE [Concomitant]
  6. ALPRAZOLAM [Concomitant]
  7. VICODIN [Concomitant]
  8. CLONAZEPAM [Concomitant]

REACTIONS (4)
  - PRODUCT SUBSTITUTION ISSUE [None]
  - BRAIN NEOPLASM [None]
  - DRUG INEFFECTIVE [None]
  - DRUG EFFECT DECREASED [None]
